FAERS Safety Report 10235491 (Version 2)
Quarter: 2014Q3

REPORT INFORMATION
  Report Type: Spontaneous
  Country: US (occurrence: US)
  Receive Date: 20140613
  Receipt Date: 20140721
  Transmission Date: 20150326
  Serious: No
  Sender: FDA-Public Use
  Company Number: US-009507513-1406USA007127

PATIENT
  Sex: Female
  Weight: 58.96 kg

DRUGS (3)
  1. OXYTROL FOR WOMEN [Suspect]
     Active Substance: OXYBUTYNIN
     Indication: URINARY INCONTINENCE
     Dosage: UNK, UNKNOWN
     Route: 062
     Dates: start: 201404, end: 201405
  2. OXYTROL FOR WOMEN [Suspect]
     Active Substance: OXYBUTYNIN
     Dosage: UNK, UNKNOWN
     Route: 062
  3. EVISTA [Concomitant]
     Active Substance: RALOXIFENE HYDROCHLORIDE
     Indication: OSTEOPENIA
     Dosage: UNK, UNKNOWN

REACTIONS (4)
  - Application site erythema [Recovered/Resolved]
  - Application site pruritus [Recovered/Resolved]
  - Application site rash [Recovered/Resolved]
  - Drug ineffective [Unknown]

NARRATIVE: CASE EVENT DATE: 2014
